FAERS Safety Report 6326456-5 (Version None)
Quarter: 2009Q3

REPORT INFORMATION
  Report Type: 
  Country: None (occurrence: None)
  Receive Date: 20090821
  Receipt Date: 20090805
  Transmission Date: 20100115
  Serious: Yes (Death, Hospitalization)
  Sender: FDA-Public Use
  Company Number: A03200903529

PATIENT
  Age: 83 Year
  Sex: Male

DRUGS (13)
  1. FLUDARABINE PHOSPHATE [Suspect]
     Indication: CHRONIC LYMPHOCYTIC LEUKAEMIA
     Dosage: ORAL
     Route: 048
     Dates: start: 20080905
  2. PREVISCAN - (FLUINDIONE) - UNKNOWN - UNIT DOSE : UNKNOWN [Suspect]
     Indication: ARRHYTHMIA
     Dosage: 1 DF QD ORAL
     Route: 048
     Dates: start: 20081130
  3. MABTHERA - (RITUXIMAB) - UNKNOWN - UNIT DOSE : UNKNOWN [Suspect]
     Indication: CHRONIC LYMPHOCYTIC LEUKAEMIA
     Dosage: INTRAVENOUS NOS
     Route: 042
     Dates: start: 20080905
  4. ENDOXAN - (CYCLOPHOSPHAMIDE) - UNKNOWN - UNIT DOSE : UNKNOWN [Suspect]
     Indication: CHRONIC LYMPHOCYTIC LEUKAEMIA
     Dosage: INTRAVENOUS NOS
     Route: 042
     Dates: start: 20080905
  5. METFORMIN HCL [Concomitant]
  6. AMARYL [Concomitant]
  7. ACARBOSE [Concomitant]
  8. NISISCO [Concomitant]
  9. AMLODIPINE BESYLATE [Concomitant]
  10. HYPERIUM (RILMENIDINE) [Concomitant]
  11. PERMIXON (SERENOA REPENS) [Concomitant]
  12. FLECAINIDE ACETATE [Concomitant]
  13. STABLON (TIANEPTINE) [Concomitant]

REACTIONS (12)
  - ALTERED STATE OF CONSCIOUSNESS [None]
  - CEREBRAL HAEMORRHAGE [None]
  - DUODENAL PERFORATION [None]
  - FALL [None]
  - FEBRILE BONE MARROW APLASIA [None]
  - HAEMODYNAMIC INSTABILITY [None]
  - HYPONATRAEMIA [None]
  - MALIGNANT NEOPLASM OF AMPULLA OF VATER [None]
  - PANCREATIC NEOPLASM [None]
  - PANCYTOPENIA [None]
  - PERITONITIS [None]
  - TRAUMATIC HAEMATOMA [None]
